FAERS Safety Report 16073954 (Version 2)
Quarter: 2019Q2

REPORT INFORMATION
  Report Type: Report from Study
  Country: IN (occurrence: IN)
  Receive Date: 20190314
  Receipt Date: 20190418
  Transmission Date: 20190711
  Serious: Yes (Death, Other)
  Sender: FDA-Public Use
  Company Number: IN-JNJFOC-20190305350

PATIENT

DRUGS (6)
  1. GOLIMUMAB [Suspect]
     Active Substance: GOLIMUMAB
     Indication: RHEUMATIC DISORDER
     Route: 058
  2. INFLIXIMAB, RECOMBINANT [Suspect]
     Active Substance: INFLIXIMAB
     Indication: RHEUMATIC DISORDER
     Route: 042
  3. ETANERCEPT [Suspect]
     Active Substance: ETANERCEPT
     Indication: RHEUMATIC DISORDER
     Route: 065
  4. TOCILIZUMAB. [Suspect]
     Active Substance: TOCILIZUMAB
     Indication: RHEUMATIC DISORDER
     Route: 065
  5. RITUXIMAB. [Suspect]
     Active Substance: RITUXIMAB
     Indication: RHEUMATIC DISORDER
     Route: 065
  6. ADALIMUMAB [Suspect]
     Active Substance: ADALIMUMAB
     Indication: RHEUMATIC DISORDER
     Route: 065

REACTIONS (20)
  - Meningitis tuberculous [Unknown]
  - Viral upper respiratory tract infection [Unknown]
  - Angioedema [Unknown]
  - Adverse event [Unknown]
  - Furuncle [Unknown]
  - Urinary tract infection [Unknown]
  - Fungal infection [Unknown]
  - Infusion related reaction [Unknown]
  - Cellulitis [Unknown]
  - Herpes zoster [Unknown]
  - Viral infection [Unknown]
  - Upper respiratory tract infection [Unknown]
  - Disseminated tuberculosis [Fatal]
  - Infection [Unknown]
  - Tuberculosis [Unknown]
  - Varicella [Unknown]
  - Candida infection [Unknown]
  - Skin infection [Unknown]
  - Diarrhoea [Unknown]
  - Injection site reaction [Unknown]
